FAERS Safety Report 14224185 (Version 2)
Quarter: 2017Q4

REPORT INFORMATION
  Report Type: Spontaneous
  Country: GB (occurrence: GB)
  Receive Date: 20171126
  Receipt Date: 20171206
  Transmission Date: 20180321
  Serious: Yes (Life-Threatening, Hospitalization, Other)
  Sender: FDA-Public Use
  Company Number: GB-INTERCEPT-PMOCA2017001430

PATIENT

DRUGS (3)
  1. OCALIVA [Suspect]
     Active Substance: OBETICHOLIC ACID
     Indication: BILIARY CIRRHOSIS PRIMARY
     Dosage: 5 MG,
     Route: 048
     Dates: start: 20171023, end: 20171105
  2. RIFAMPICIN [Concomitant]
     Active Substance: RIFAMPIN
     Dosage: 300 MG, BID
  3. UDCA [Concomitant]
     Active Substance: URSODIOL
     Dosage: 750 MG, BID

REACTIONS (7)
  - Blood bilirubin increased [Not Recovered/Not Resolved]
  - Headache [Not Recovered/Not Resolved]
  - Constipation [Not Recovered/Not Resolved]
  - Hepatic enzyme increased [Not Recovered/Not Resolved]
  - Pruritus [Not Recovered/Not Resolved]
  - Hepatic failure [Not Recovered/Not Resolved]
  - Fluid retention [Unknown]

NARRATIVE: CASE EVENT DATE: 201711
